FAERS Safety Report 13105343 (Version 1)
Quarter: 2017Q1

REPORT INFORMATION
  Report Type: Spontaneous
  Country: US (occurrence: US)
  Receive Date: 20170111
  Receipt Date: 20170111
  Transmission Date: 20170428
  Serious: Yes (Death, Other)
  Sender: FDA-Public Use
  Company Number: US-CLINIGEN GROUP PLC/ CLINIGEN HEALTHCARE LTD-E2B_00005603

PATIENT
  Age: 41 Year
  Sex: Male

DRUGS (16)
  1. FOSCARNET?SODIUM [Suspect]
     Active Substance: FOSCARNET SODIUM
     Indication: CYTOMEGALOVIRUS VIRAEMIA
     Route: 042
  2. FOSCARNET?SODIUM [Suspect]
     Active Substance: FOSCARNET SODIUM
     Dosage: MAINTENANCE DOSE
     Route: 042
  3. IMMUNE GLOBULIN NOS [Concomitant]
     Active Substance: IMMUNE GLOBULIN NOS
     Indication: ENCEPHALITIS CYTOMEGALOVIRUS
  4. IMMUNE GLOBULIN NOS [Concomitant]
     Active Substance: IMMUNE GLOBULIN NOS
     Indication: PROPHYLAXIS AGAINST GRAFT VERSUS HOST DISEASE
     Route: 042
  5. GANCICLOVIR - INTRAVENOUS INFUSION [Concomitant]
     Indication: PROPHYLAXIS
     Dosage: MONDAY-FRIDAY
  6. ANTI-THYMOCYTE GLOBULIN [Concomitant]
     Active Substance: THYMOCYTE IMMUNE GLOBULIN NOS
     Indication: ACUTE LEUKAEMIA
     Dosage: OVER DAYS 3, 2, 1 BEFORE TRANSPLANTATION
  7. FLUDARABINE [Concomitant]
     Active Substance: FLUDARABINE PHOSPHATE
     Indication: ACUTE LEUKAEMIA
  8. GANCICLOVIR - INTRAVENOUS INFUSION [Concomitant]
     Indication: CYTOMEGALOVIRUS VIRAEMIA
     Route: 042
  9. PREDNISONE. [Concomitant]
     Active Substance: PREDNISONE
     Indication: GRAFT VERSUS HOST DISEASE IN SKIN
  10. CIDOFOVIR - CONCENTRATE FOR SOLUTION FOR INFUSION [Concomitant]
     Indication: ENCEPHALITIS CYTOMEGALOVIRUS
  11. FOSCARNET?SODIUM [Suspect]
     Active Substance: FOSCARNET SODIUM
     Route: 042
  12. CYCLOPHOSPHAMIDE - COATED TABLET [Concomitant]
     Indication: ACUTE LEUKAEMIA
  13. CICLOSPORIN [Concomitant]
     Active Substance: CYCLOSPORINE
     Indication: PROPHYLAXIS AGAINST GRAFT VERSUS HOST DISEASE
  14. MYCOPHENOLATE [Concomitant]
     Active Substance: MYCOPHENOLIC ACID
     Indication: PROPHYLAXIS AGAINST GRAFT VERSUS HOST DISEASE
  15. PREDNISONE. [Concomitant]
     Active Substance: PREDNISONE
     Indication: GRAFT VERSUS HOST DISEASE IN SKIN
  16. VALGANCICLOVIR. [Concomitant]
     Active Substance: VALGANCICLOVIR
     Indication: CYTOMEGALOVIRUS VIRAEMIA

REACTIONS (7)
  - Neurological decompensation [Unknown]
  - Nephropathy toxic [Unknown]
  - Encephalitis [Unknown]
  - Disorientation [Unknown]
  - Renal failure [Unknown]
  - Death [Fatal]
  - Memory impairment [Unknown]
